FAERS Safety Report 17015594 (Version 1)
Quarter: 2019Q4

REPORT INFORMATION
  Report Type: Spontaneous
  Country: CA (occurrence: CA)
  Receive Date: 20191111
  Receipt Date: 20191111
  Transmission Date: 20200122
  Serious: Yes (Other)
  Sender: FDA-Public Use
  Company Number: CA-PFIZER INC-2019479067

PATIENT
  Age: 56 Year

DRUGS (9)
  1. FLUOROURACIL. [Suspect]
     Active Substance: FLUOROURACIL
     Dosage: UNK, CYCLIC
  2. ELOXATIN [Suspect]
     Active Substance: OXALIPLATIN
     Dosage: UNK, CYCLIC
  3. LEUCOVORIN. [Suspect]
     Active Substance: LEUCOVORIN
     Dosage: UNK, CYCLIC
  4. FLUOROURACIL. [Suspect]
     Active Substance: FLUOROURACIL
     Dosage: UNK
  5. IRINOTECAN HCL [Suspect]
     Active Substance: IRINOTECAN HYDROCHLORIDE
     Dosage: UNK, CYCLIC
  6. ELOXATIN [Suspect]
     Active Substance: OXALIPLATIN
     Dosage: UNK, CYCLIC
  7. LEUCOVORIN. [Suspect]
     Active Substance: LEUCOVORIN
     Dosage: UNK, CYCLIC
  8. AVASTIN [Suspect]
     Active Substance: BEVACIZUMAB
     Indication: COLORECTAL CANCER METASTATIC
     Dosage: UNK, CYCLIC
  9. AVASTIN [Suspect]
     Active Substance: BEVACIZUMAB
     Dosage: UNK, CYCLIC

REACTIONS (2)
  - Neoplasm progression [Unknown]
  - Neurotoxicity [Unknown]
